FAERS Safety Report 4578582-9 (Version None)
Quarter: 2005Q1

REPORT INFORMATION
  Report Type: 
  Country: None (occurrence: None)
  Receive Date: 20050209
  Receipt Date: 20050209
  Transmission Date: 20050727
  Serious: Yes (Other)
  Sender: FDA-Public Use
  Company Number: None

PATIENT
  Age: 14 Year
  Sex: Female
  Weight: 40 kg

DRUGS (4)
  1. L-CARNITINE [Suspect]
     Indication: MEDIUM-CHAIN ACETYL-COENZYME A DEHYDROGENASE DEFICIENCY
     Dosage: 1 G   Q.I.D.    ORAL
     Route: 048
     Dates: start: 20030507, end: 20030508
  2. TEGRETOL [Concomitant]
  3. CLONAZEPAM [Concomitant]
  4. PHENYTOIN -HYDANTAL [Concomitant]

REACTIONS (5)
  - ANOREXIA [None]
  - CONDITION AGGRAVATED [None]
  - FATIGUE [None]
  - SOMNOLENCE [None]
  - TREMOR [None]
